FAERS Safety Report 7390167-8 (Version None)
Quarter: 2011Q2

REPORT INFORMATION
  Report Type: 
  Country: None (occurrence: None)
  Receive Date: 20110401
  Receipt Date: 20110323
  Transmission Date: 20111010
  Serious: Yes (Life-Threatening, Hospitalization)
  Sender: FDA-Public Use
  Company Number: JP-AMGEN-JPNCT2010008250

PATIENT
  Age: 41 Year
  Sex: Female
  Weight: 45 kg

DRUGS (25)
  1. PANITUMUMAB [Suspect]
     Indication: COLORECTAL CANCER
     Dosage: 6 MG/KG, Q2WK
     Route: 041
     Dates: start: 20101104, end: 20101216
  2. FLUOROURACIL [Suspect]
     Route: 041
     Dates: start: 20101104
  3. URSO 250 [Concomitant]
     Route: 048
  4. GASLON N [Concomitant]
     Indication: STOMATITIS
     Route: 048
  5. IRINOTECAN HYDROCHLORIDE [Suspect]
     Route: 041
     Dates: start: 20101104, end: 20101216
  6. FLUOROURACIL [Suspect]
     Indication: COLORECTAL CANCER
     Dosage: UNK UNK, Q2WK
     Route: 040
     Dates: start: 20101104, end: 20101216
  7. DIFLAL [Concomitant]
     Route: 062
  8. HACHIAZULE [Concomitant]
     Route: 049
  9. GLYCYRON [Concomitant]
     Route: 048
  10. PARIET [Concomitant]
     Route: 048
  11. FLUOROURACIL [Suspect]
     Route: 041
     Dates: start: 20101104, end: 20101216
  12. ANTIHISTAMINES [Concomitant]
     Indication: PROPHYLAXIS
     Route: 065
  13. MAGNESIUM SULFATE [Concomitant]
     Dosage: 2 UNK, UNK
     Route: 042
  14. ALOXI [Concomitant]
     Route: 042
  15. EMEND [Concomitant]
     Route: 048
  16. CALCIUM LEVOFOLINATE [Suspect]
     Indication: COLORECTAL CANCER
     Dosage: 200 MG/M2, Q2WK
     Route: 041
     Dates: start: 20101104, end: 20101216
  17. MAGNESIUM SULFATE [Concomitant]
  18. ELENTAL [Concomitant]
     Route: 048
  19. CALCIUM LEVOFOLINATE [Suspect]
     Route: 041
     Dates: start: 20101104, end: 20101216
  20. IRINOTECAN HYDROCHLORIDE [Suspect]
     Indication: COLORECTAL CANCER
     Dosage: 150 MG/M2, Q2WK
     Route: 041
     Dates: start: 20101104, end: 20101216
  21. CORTICOSTEROIDS [Concomitant]
     Indication: PROPHYLAXIS
     Route: 065
  22. DEXART [Concomitant]
     Route: 042
  23. DEXART [Concomitant]
  24. MINOMYCIN [Concomitant]
     Route: 048
  25. TALION [Concomitant]
     Route: 048

REACTIONS (6)
  - HYPOCALCAEMIA [None]
  - STOMATITIS [None]
  - DRY SKIN [None]
  - HYPOMAGNESAEMIA [None]
  - ELECTROCARDIOGRAM QT PROLONGED [None]
  - SKIN FISSURES [None]
